FAERS Safety Report 10781411 (Version 3)
Quarter: 2015Q2

REPORT INFORMATION
  Report Type: Spontaneous
  Country: US (occurrence: US)
  Receive Date: 20150210
  Receipt Date: 20150422
  Transmission Date: 20150821
  Serious: Yes (Other)
  Sender: FDA-Public Use
  Company Number: US-009507513-1502USA002112

PATIENT
  Age: 71 Year
  Sex: Female
  Weight: 57.5 kg

DRUGS (2)
  1. SYLATRON [Suspect]
     Active Substance: PEGINTERFERON ALFA-2B
     Indication: MALIGNANT MELANOMA
     Dosage: 6 MCG/KG/WEEK
     Route: 058
     Dates: start: 20131111
  2. SYLATRON [Suspect]
     Active Substance: PEGINTERFERON ALFA-2B
     Dosage: 3 MCG/KG/WEEK
     Route: 058
     Dates: end: 20141229

REACTIONS (9)
  - Blood potassium abnormal [Unknown]
  - Blood calcium abnormal [Unknown]
  - Aspartate aminotransferase abnormal [Unknown]
  - Alanine aminotransferase abnormal [Unknown]
  - Mean platelet volume abnormal [Unknown]
  - Hepatic enzyme increased [Not Recovered/Not Resolved]
  - White blood cell count abnormal [Unknown]
  - Metastases to lung [Not Recovered/Not Resolved]
  - Metastatic malignant melanoma [Not Recovered/Not Resolved]

NARRATIVE: CASE EVENT DATE: 20131125
